FAERS Safety Report 19772512 (Version 1)
Quarter: 2021Q3

REPORT INFORMATION
  Report Type: Spontaneous
  Country: AR (occurrence: AR)
  Receive Date: 20210901
  Receipt Date: 20210901
  Transmission Date: 20211014
  Serious: Yes (Other)
  Sender: FDA-Public Use
  Company Number: AR-PFIZER INC-2021448518

PATIENT
  Age: 44 Year
  Sex: Female

DRUGS (3)
  1. VIZIMPRO [Suspect]
     Active Substance: DACOMITINIB
     Indication: LUNG CANCER METASTATIC
     Dosage: 40 MG, EVERY OTHER DAY
  2. VIZIMPRO [Suspect]
     Active Substance: DACOMITINIB
     Dosage: 30 MG, WOULD NOT TAKE IT FOR 2 DAYS, THEN TAKE IT FOR 2 DAYS, OR 3 DAYS ON AND 2 OFF
     Dates: start: 20210218
  3. VIZIMPRO [Suspect]
     Active Substance: DACOMITINIB
     Dosage: 30 MG, 1 DAY ON AND 2 DAYS OFF THEN 2 DAYS ON AND 2 DAYS OFF

REACTIONS (4)
  - Off label use [Unknown]
  - Diarrhoea [Not Recovered/Not Resolved]
  - Limb injury [Not Recovered/Not Resolved]
  - Haemorrhage [Not Recovered/Not Resolved]

NARRATIVE: CASE EVENT DATE: 202104
